FAERS Safety Report 24786705 (Version 1)
Quarter: 2024Q4

REPORT INFORMATION
  Report Type: Spontaneous
  Country: GB (occurrence: GB)
  Receive Date: 20241230
  Receipt Date: 20241230
  Transmission Date: 20250115
  Serious: Yes (Other)
  Sender: ALEXION PHARMACEUTICALS
  Company Number: None

PATIENT

DRUGS (4)
  1. FULVESTRANT [Suspect]
     Active Substance: FULVESTRANT
     Dosage: 500MG SINGLE DOSE
     Route: 065
  2. FULVESTRANT [Suspect]
     Active Substance: FULVESTRANT
  3. OXYCODONE [Concomitant]
     Active Substance: OXYCODONE
     Indication: Analgesic therapy
     Route: 065
  4. PALBOCICLIB [Concomitant]
     Active Substance: PALBOCICLIB
     Indication: Breast cancer
     Route: 065

REACTIONS (1)
  - Poisoning [Recovered/Resolved]
